FAERS Safety Report 5956261-0 (Version None)
Quarter: 2008Q4

REPORT INFORMATION
  Report Type: 
  Country: None (occurrence: None)
  Receive Date: 20081118
  Receipt Date: 20081105
  Transmission Date: 20090506
  Serious: Yes (Hospitalization, Other)
  Sender: FDA-Public Use
  Company Number: US-BIOGENIDEC-2008BI022775

PATIENT
  Age: 46 Year
  Sex: Male
  Weight: 95 kg

DRUGS (2)
  1. TYSABRI [Suspect]
     Indication: MULTIPLE SCLEROSIS
     Route: 042
     Dates: start: 20080201, end: 20080805
  2. VICODIN [Concomitant]

REACTIONS (2)
  - LUNG ADENOCARCINOMA [None]
  - WHITE BLOOD CELL COUNT INCREASED [None]
